FAERS Safety Report 25593631 (Version 1)
Quarter: 2025Q3

REPORT INFORMATION
  Report Type: Spontaneous
  Country: US (occurrence: US)
  Receive Date: 20250722
  Receipt Date: 20250722
  Transmission Date: 20251020
  Serious: Yes (Other)
  Sender: ALEXION PHARMACEUTICALS
  Company Number: US-ASTRAZENECA-202507GLO012438US

PATIENT
  Age: 58 Year
  Sex: Male
  Weight: 120 kg

DRUGS (10)
  1. NEXIUM [Suspect]
     Active Substance: ESOMEPRAZOLE MAGNESIUM
  2. MELATONIN [Concomitant]
     Active Substance: MELATONIN
  3. TUMS [Concomitant]
     Active Substance: CALCIUM CARBONATE
  4. ACETAMINOPHEN [Concomitant]
     Active Substance: ACETAMINOPHEN
  5. ELIQUIS [Concomitant]
     Active Substance: APIXABAN
  6. NORVASC [Concomitant]
     Active Substance: AMLODIPINE BESYLATE
  7. CALCIUM CARBONATE [Concomitant]
     Active Substance: CALCIUM CARBONATE
  8. FEBUXOSTAT [Concomitant]
     Active Substance: FEBUXOSTAT
  9. LOSARTAN [Concomitant]
     Active Substance: LOSARTAN
  10. MIRALAX [Concomitant]
     Active Substance: POLYETHYLENE GLYCOL 3350

REACTIONS (2)
  - Gastric cancer [Unknown]
  - Neuroendocrine tumour [Unknown]
